FAERS Safety Report 6908010-7 (Version None)
Quarter: 2010Q3

REPORT INFORMATION
  Report Type: 
  Country: None (occurrence: None)
  Receive Date: 20100805
  Receipt Date: 20100728
  Transmission Date: 20110219
  Serious: Yes (Other)
  Sender: FDA-Public Use
  Company Number: US-ELI_LILLY_AND_COMPANY-US201008000001

PATIENT
  Sex: Male

DRUGS (3)
  1. HUMALOG MIX 50/50 [Suspect]
  2. HUMULIN R [Suspect]
  3. BYETTA [Concomitant]

REACTIONS (3)
  - CARDIAC FAILURE [None]
  - PLATELET ADHESIVENESS ABNORMAL [None]
  - STENT PLACEMENT [None]
